FAERS Safety Report 13232104 (Version 1)
Quarter: 2017Q1

REPORT INFORMATION
  Report Type: Report from Study
  Country: DE (occurrence: DE)
  Receive Date: 20170214
  Receipt Date: 20170214
  Transmission Date: 20170428
  Serious: Yes (Death, Other)
  Sender: FDA-Public Use
  Company Number: DE-MYLANLABS-2017M1008216

PATIENT

DRUGS (7)
  1. VINCRISTINE [Concomitant]
     Active Substance: VINCRISTINE
     Indication: MEDULLOBLASTOMA
     Dosage: 1.5 MG/M2, ON DAY 1
     Route: 042
  2. ETOPOSIDE. [Concomitant]
     Active Substance: ETOPOSIDE
     Indication: MEDULLOBLASTOMA
     Dosage: 150 MG/M2/DAY, FOR HALF HOUR, ON DAYS 1, 2, 3
     Route: 042
  3. MESNA. [Concomitant]
     Active Substance: MESNA
     Indication: MEDULLOBLASTOMA
     Dosage: 750 MG/M2/DAY, 24-H-INFUSION, ON DAYS 1-4
     Route: 050
  4. FOLINIC ACID [Concomitant]
     Active Substance: LEUCOVORIN
     Indication: MEDULLOBLASTOMA
     Dosage: 15 MG/M2 X6Q6H, START AFTER 42H
     Route: 042
  5. METHOTREXATE. [Suspect]
     Active Substance: METHOTREXATE
     Indication: MEDULLOBLASTOMA
     Dosage: 2 MG/DOSE;12 SINGLE DOSES PER CYCLE
     Route: 050
  6. CYCLOPHOSPHAMIDE. [Concomitant]
     Active Substance: CYCLOPHOSPHAMIDE
     Indication: MEDULLOBLASTOMA
     Dosage: 800 MG/M2/DAY, FOR 1H, ON DAYS 1, 2, 3
     Route: 042
  7. CARBOPLATIN. [Concomitant]
     Active Substance: CARBOPLATIN
     Indication: MEDULLOBLASTOMA
     Dosage: 200 MG/M2/DAY, FOR 1H, ON DAYS 1, 2, 3
     Route: 042

REACTIONS (1)
  - Leukoencephalopathy [Fatal]
